FAERS Safety Report 4438155-5 (Version None)
Quarter: 2004Q3

REPORT INFORMATION
  Report Type: 
  Country: None (occurrence: None)
  Receive Date: 20040831
  Receipt Date: 20040603
  Transmission Date: 20050211
  Serious: No
  Sender: FDA-Public Use
  Company Number: US-GLAXOSMITHKLINE-A0513289A

PATIENT
  Sex: Male

DRUGS (9)
  1. WELLBUTRIN XL [Suspect]
     Indication: DEPRESSION
     Dosage: 150MG PER DAY
     Route: 048
  2. LESCOL [Concomitant]
  3. FORADIL [Concomitant]
  4. DOXAZOSIN [Concomitant]
  5. ALBUTEROL [Concomitant]
  6. ZANTAC [Concomitant]
  7. ATIVAN [Concomitant]
  8. ASPIRIN [Concomitant]
  9. NASACORT [Concomitant]

REACTIONS (1)
  - NERVOUSNESS [None]
